FAERS Safety Report 17900092 (Version 1)
Quarter: 2020Q2

REPORT INFORMATION
  Report Type: Other
  Country: AU (occurrence: AU)
  Receive Date: 20200616
  Receipt Date: 20200616
  Transmission Date: 20200714
  Serious: Yes (Hospitalization)
  Sender: FDA-Public Use
  Company Number: AU-NUVO PHARMACEUTICALS INC-2085935

PATIENT
  Age: 68 Year
  Sex: Female

DRUGS (2)
  1. OXYCODONE HYDROCHLORIDE. [Suspect]
     Active Substance: OXYCODONE HYDROCHLORIDE
     Indication: BONE DISORDER
     Route: 065
  2. OXYCODONE AND NALOXONE EXTENDED RELEASE [Suspect]
     Active Substance: NALOXONE HYDROCHLORIDE\OXYCODONE HYDROCHLORIDE
     Route: 065

REACTIONS (6)
  - Depressed level of consciousness [Recovered/Resolved]
  - Respiratory rate decreased [Recovered/Resolved]
  - Toxicity to various agents [Unknown]
  - Product substitution issue [Unknown]
  - Hepatic function abnormal [Unknown]
  - Miosis [Recovered/Resolved]
